FAERS Safety Report 5863314-4 (Version None)
Quarter: 2008Q3

REPORT INFORMATION
  Report Type: 
  Country: None (occurrence: None)
  Receive Date: 20080828
  Receipt Date: 20080818
  Transmission Date: 20090109
  Serious: Yes (Hospitalization, Other)
  Sender: FDA-Public Use
  Company Number: PHHY2008DE14166

PATIENT
  Sex: Female
  Weight: 75 kg

DRUGS (4)
  1. CLOZAPINE [Suspect]
     Indication: SCHIZOAFFECTIVE DISORDER
     Dosage: 500 MG/DAY
     Route: 048
     Dates: start: 20051020, end: 20080715
  2. CLOZAPINE [Suspect]
     Dosage: 25 MG/ DAY
     Route: 048
     Dates: end: 20080723
  3. CLOZAPINE [Suspect]
     Dosage: 50 MG/ DAY
     Route: 048
     Dates: end: 20080725
  4. LORAZEPAM [Concomitant]
     Indication: SCHIZOAFFECTIVE DISORDER
     Dosage: 3 MG/ DAY
     Route: 048
     Dates: start: 20080715

REACTIONS (4)
  - GRANULOCYTOPENIA [None]
  - INFECTIOUS MONONUCLEOSIS [None]
  - LEUKOPENIA [None]
  - NEUTROPENIA [None]
